FAERS Safety Report 9292311 (Version 1)
Quarter: 2013Q1

REPORT INFORMATION
  Report Type: Spontaneous
  Country: US (occurrence: None)
  Receive Date: 20121214
  Receipt Date: 20121214
  Transmission Date: 20140127
  Serious: No
  Sender: FDA-Public Use
  Company Number: E7389-03253-SPO-US

PATIENT
  Age: 71 Year
  Sex: Female
  Weight: 75 kg

DRUGS (1)
  1. HALAVEN [Suspect]
     Indication: BREAST CANCER
     Dosage: UNKNOWN, UNKNOWN, INTRAVENOUS
     Route: 042
     Dates: start: 201206, end: 201209

REACTIONS (3)
  - Motor dysfunction [None]
  - Weight decreased [None]
  - Neuropathy peripheral [None]
